FAERS Safety Report 25281742 (Version 1)
Quarter: 2025Q2

REPORT INFORMATION
  Report Type: Spontaneous
  Country: DE (occurrence: None)
  Receive Date: 20250508
  Receipt Date: 20250508
  Transmission Date: 20250717
  Serious: Yes (Other)
  Sender: CMP PHARMA
  Company Number: DE-CMPPHARMA-000502

PATIENT

DRUGS (1)
  1. TRIANEX [Suspect]
     Active Substance: TRIAMCINOLONE ACETONIDE
     Indication: Optic ischaemic neuropathy

REACTIONS (2)
  - Ocular hypertension [Unknown]
  - Off label use [Unknown]
